FAERS Safety Report 18470492 (Version 1)
Quarter: 2020Q4

REPORT INFORMATION
  Report Type: Spontaneous
  Country: US (occurrence: US)
  Receive Date: 20201105
  Receipt Date: 20201105
  Transmission Date: 20210114
  Serious: Yes (Death, Other)
  Sender: FDA-Public Use
  Company Number: US-INCYTE CORPORATION-2020IN010928

PATIENT

DRUGS (1)
  1. JAKAFI [Suspect]
     Active Substance: RUXOLITINIB
     Indication: MYELOFIBROSIS
     Dosage: 20 MILLIGRAM (TWO 10 MG TABLETS), BID
     Route: 048
     Dates: start: 20191113, end: 20200820

REACTIONS (1)
  - Death [Fatal]

NARRATIVE: CASE EVENT DATE: 20200820
